FAERS Safety Report 7306164-4 (Version None)
Quarter: 2011Q1

REPORT INFORMATION
  Report Type: 
  Country: None (occurrence: None)
  Receive Date: 20110209
  Receipt Date: 20110128
  Transmission Date: 20110831
  Serious: Yes (Hospitalization)
  Sender: FDA-Public Use
  Company Number: 007607

PATIENT
  Sex: Male

DRUGS (12)
  1. SERTRALINE [Concomitant]
  2. TRAMADOL HCL [Concomitant]
  3. ARIPIPRAZOLE [Concomitant]
  4. PREDNISONE [Concomitant]
  5. DIVALPROEX SODIUM [Concomitant]
  6. CIMZIA [Suspect]
     Indication: CROHN'S DISEASE
     Dosage: (400 MG 1X/2 WEEKS, INDUCTION DOSE SUBCUTANEOUS), (400 MG 1X/MONTH SUBCUTANEOUS)
     Route: 058
     Dates: start: 20100803
  7. CIMZIA [Suspect]
     Indication: COLITIS ULCERATIVE
     Dosage: (400 MG 1X/2 WEEKS, INDUCTION DOSE SUBCUTANEOUS), (400 MG 1X/MONTH SUBCUTANEOUS)
     Route: 058
     Dates: start: 20100803
  8. AZATHIOPRINE [Concomitant]
  9. OMEPRAZOLE [Concomitant]
  10. COUMADIN [Concomitant]
  11. FOLIC ACID [Concomitant]
  12. HYOSCYAMINE SULFATE [Concomitant]

REACTIONS (8)
  - ABDOMINAL PAIN [None]
  - COLITIS ULCERATIVE [None]
  - CONDITION AGGRAVATED [None]
  - DIARRHOEA [None]
  - RESPIRATORY TRACT INFECTION [None]
  - SPUTUM DISCOLOURED [None]
  - ANAEMIA [None]
  - LEUKOPENIA [None]
